FAERS Safety Report 5377991-8 (Version None)
Quarter: 2007Q2

REPORT INFORMATION
  Report Type: 
  Country: None (occurrence: None)
  Receive Date: 20070629
  Receipt Date: 20070622
  Transmission Date: 20071010
  Serious: Yes (Hospitalization)
  Sender: FDA-Public Use
  Company Number: 163-C5013-07050202

PATIENT
  Age: 59 Year
  Sex: Male
  Weight: 105.1 kg

DRUGS (10)
  1. CC-5013 (LENALIDOMIDE) (CAPSULES) [Suspect]
     Indication: CHRONIC LYMPHOCYTIC LEUKAEMIA
     Dosage: 3 CAPS, DAILY, ORAL
     Route: 048
     Dates: start: 20070430
  2. ALLOPURINOL [Concomitant]
  3. PREDNISONE TAB [Concomitant]
  4. VICODIN [Concomitant]
  5. ADVAIR DISKUS 100/50 [Concomitant]
  6. COMPAZINE [Concomitant]
  7. POTASSIUM CHLORIDE [Concomitant]
  8. XOPENEX [Concomitant]
  9. SPIRIVA (TIOTROPIUM BROMIDE) (AEROSOL FOR INHALATION) [Concomitant]
  10. BUMEX [Concomitant]

REACTIONS (14)
  - ABDOMINAL PAIN [None]
  - BACK PAIN [None]
  - BLOOD POTASSIUM INCREASED [None]
  - CARDIOMEGALY [None]
  - HAEMODIALYSIS [None]
  - HEPATOSPLENOMEGALY [None]
  - HYDRONEPHROSIS [None]
  - LYMPHADENOPATHY [None]
  - LYMPHADENOPATHY MEDIASTINAL [None]
  - PLATELET COUNT DECREASED [None]
  - PLEURAL EFFUSION [None]
  - RENAL FAILURE ACUTE [None]
  - TUMOUR FLARE [None]
  - TUMOUR LYSIS SYNDROME [None]
